FAERS Safety Report 6964735-9 (Version None)
Quarter: 2010Q3

REPORT INFORMATION
  Report Type: 
  Country: None (occurrence: None)
  Receive Date: 20100903
  Receipt Date: 20100505
  Transmission Date: 20110219
  Serious: Yes (Other)
  Sender: FDA-Public Use
  Company Number: ES-CUBIST-2010S1001346

PATIENT
  Age: 80 Year
  Sex: Male
  Weight: 68 kg

DRUGS (1)
  1. CUBICIN [Suspect]
     Indication: DEVICE RELATED INFECTION
     Route: 042

REACTIONS (2)
  - RENAL FAILURE [None]
  - RENAL TUBULAR NECROSIS [None]
